FAERS Safety Report 19828657 (Version 1)
Quarter: 2021Q3

REPORT INFORMATION
  Report Type: Spontaneous
  Country: ES (occurrence: ES)
  Receive Date: 20210914
  Receipt Date: 20210914
  Transmission Date: 20211014
  Serious: Yes (Other)
  Sender: FDA-Public Use
  Company Number: ES-MYLANLABS-2021M1061482

PATIENT
  Age: 12 Year
  Sex: Male

DRUGS (2)
  1. SILDENAFIL. [Suspect]
     Active Substance: SILDENAFIL
     Indication: PRODUCT USED FOR UNKNOWN INDICATION
     Dosage: UNK
     Route: 065
  2. TRACLEER [Suspect]
     Active Substance: BOSENTAN
     Indication: PULMONARY ARTERY ATRESIA
     Dosage: UNK
     Route: 065

REACTIONS (2)
  - Oxygen saturation abnormal [Unknown]
  - General physical health deterioration [Unknown]
